FAERS Safety Report 19608215 (Version 1)
Quarter: 2021Q3

REPORT INFORMATION
  Report Type: Spontaneous
  Country: DE (occurrence: DE)
  Receive Date: 20210726
  Receipt Date: 20210726
  Transmission Date: 20211014
  Serious: Yes (Other)
  Sender: FDA-Public Use
  Company Number: NVSC2021DE157090

PATIENT
  Sex: Female

DRUGS (7)
  1. OLANZAPINE. [Suspect]
     Active Substance: OLANZAPINE
     Indication: SLEEP DISORDER
     Dosage: 10 MG
     Route: 065
     Dates: start: 20200623, end: 20200712
  2. OLANZAPINE. [Suspect]
     Active Substance: OLANZAPINE
     Dosage: 5 MG
     Route: 065
     Dates: start: 20200720, end: 20200726
  3. OLANZAPINE. [Suspect]
     Active Substance: OLANZAPINE
     Indication: THINKING ABNORMAL
     Dosage: 7.5 MG, QD
     Route: 065
     Dates: start: 20200301, end: 20200622
  4. OLANZAPINE. [Suspect]
     Active Substance: OLANZAPINE
     Dosage: 7.5 MG
     Route: 065
     Dates: start: 20200713, end: 20200719
  5. VENLAFAXIN HEXAL [Suspect]
     Active Substance: VENLAFAXINE HYDROCHLORIDE
     Indication: PRODUCT USED FOR UNKNOWN INDICATION
     Dosage: 75 MG, QD (B.A.W.)
     Route: 065
     Dates: start: 20200301
  6. OLANZAPINE. [Suspect]
     Active Substance: OLANZAPINE
     Dosage: 2.5 MG
     Route: 065
     Dates: start: 20200727, end: 20200730
  7. MONTELUKAST [Concomitant]
     Active Substance: MONTELUKAST SODIUM
     Indication: PRODUCT USED FOR UNKNOWN INDICATION
     Dosage: 10 MG, QD (EINNAHME SEIT JAHREN; B.A.W)
     Route: 065

REACTIONS (3)
  - Weight increased [Recovering/Resolving]
  - Food craving [Recovering/Resolving]
  - Restlessness [Unknown]

NARRATIVE: CASE EVENT DATE: 2020
